FAERS Safety Report 4614914-0 (Version None)
Quarter: 2005Q1

REPORT INFORMATION
  Report Type: 
  Country: None (occurrence: None)
  Receive Date: 20050322
  Receipt Date: 20010719
  Transmission Date: 20050727
  Serious: Yes (Death)
  Sender: FDA-Public Use
  Company Number: US-ROCHE-264894

PATIENT
  Age: 19 Year
  Sex: Male
  Weight: 57.6 kg

DRUGS (2)
  1. ACCUTANE [Suspect]
     Indication: ACNE
     Route: 048
     Dates: start: 20000115, end: 20000417
  2. ACCUTANE [Suspect]
     Route: 048
     Dates: start: 20000417

REACTIONS (11)
  - ABNORMAL BEHAVIOUR [None]
  - AFFECT LABILITY [None]
  - COMPLETED SUICIDE [None]
  - CRYING [None]
  - DEPRESSED MOOD [None]
  - GUN SHOT WOUND [None]
  - LETHARGY [None]
  - PREGNANCY OF PARTNER [None]
  - SOCIAL AVOIDANT BEHAVIOUR [None]
  - STRESS [None]
  - TRANSMISSION OF DRUG VIA SEMEN [None]
